FAERS Safety Report 9727671 (Version 2)
Quarter: 2013Q4

REPORT INFORMATION
  Report Type: Spontaneous
  Country: AT (occurrence: AT)
  Receive Date: 20131203
  Receipt Date: 20131203
  Transmission Date: 20140711
  Serious: Yes (Hospitalization)
  Sender: FDA-Public Use
  Company Number: AT-AMGEN-AUTSP2013066231

PATIENT
  Age: 72 Year
  Sex: Female
  Weight: 60 kg

DRUGS (7)
  1. PROLIA [Suspect]
     Indication: OSTEOPOROSIS
     Dosage: UNK UNK, Q6MO
     Route: 058
     Dates: start: 20120217
  2. PROLIA [Suspect]
     Dosage: UNK
     Route: 058
     Dates: start: 20130222
  3. PROLIA [Suspect]
     Dosage: UNK
     Route: 058
     Dates: start: 201208
  4. PROLIA [Suspect]
     Dosage: UNK
     Route: 058
     Dates: start: 20130902
  5. CALCIUM PLUS VITAMIN D3 [Concomitant]
     Dosage: UNK
     Dates: start: 20100219
  6. OSTEOCALVIT [Concomitant]
     Indication: OSTEOPOROSIS
     Dosage: UNK UNK, QD
     Dates: start: 20110526, end: 20130902
  7. OLEOVIT D3 [Concomitant]
     Indication: HYPOVITAMINOSIS
     Dosage: UNK UNK, QD
     Dates: start: 20100219

REACTIONS (2)
  - Onychoclasis [Not Recovered/Not Resolved]
  - Alopecia [Not Recovered/Not Resolved]
